FAERS Safety Report 9604458 (Version 2)
Quarter: 2013Q4

REPORT INFORMATION
  Report Type: Spontaneous
  Country: IN (occurrence: IN)
  Receive Date: 20131008
  Receipt Date: 20131018
  Transmission Date: 20140711
  Serious: Yes (Other)
  Sender: FDA-Public Use
  Company Number: IN-ASTRAZENECA-2013SE73721

PATIENT
  Sex: Male
  Weight: 64 kg

DRUGS (18)
  1. BRILINTA [Suspect]
     Indication: ANGIOPLASTY
     Route: 048
     Dates: start: 201308
  2. BRILINTA [Suspect]
     Indication: CORONARY ARTERY BYPASS
     Route: 048
     Dates: start: 201308
  3. BRILINTA [Suspect]
     Indication: CORONARY ARTERY DISEASE
     Route: 048
     Dates: start: 201308
  4. BRILINTA [Suspect]
     Indication: HYPERTENSION
     Route: 048
     Dates: start: 201308
  5. BRILINTA [Suspect]
     Indication: DIABETES MELLITUS
     Route: 048
     Dates: start: 201308
  6. ATORVASTATIN [Concomitant]
     Indication: CORONARY ARTERY DISEASE
     Dosage: START DATE SEVERAL MONTHS OR YEARS
     Route: 048
  7. INHALERS [Concomitant]
     Indication: CHRONIC OBSTRUCTIVE PULMONARY DISEASE
     Dosage: INHALATION. START DATE SEVERAL MONTHS OR YEARS
  8. TORSEMIDE [Concomitant]
     Indication: HYPERTENSION
     Dosage: START DATE SEVERAL MONTHS OR YEARS
     Route: 048
  9. DERIPHYLLIN [Concomitant]
     Indication: CHRONIC OBSTRUCTIVE PULMONARY DISEASE
     Dosage: START DATE SEVERAL MONTHS OR YEARS
     Route: 048
  10. MULTIVITAMIN [Concomitant]
     Dosage: START DATE SEVERAL MONTHS OR YEARS
     Route: 048
  11. SEDATIVE [Concomitant]
     Dosage: START DATE SEVERAL MONTHS OR YEARS
     Route: 048
  12. ORAL HYPOGLYCEMIC AGENT [Concomitant]
     Dosage: START DATE SEVERAL MONTHS OR YEARS
     Route: 048
  13. ASPIRIN [Concomitant]
     Indication: HYPERTENSION
  14. ASPIRIN [Concomitant]
     Indication: DIABETES MELLITUS
  15. ASPIRIN [Concomitant]
     Indication: CORONARY ARTERY DISEASE
  16. ASPIRIN [Concomitant]
     Indication: ANGIOPLASTY
  17. ASPIRIN [Concomitant]
     Indication: CORONARY ARTERY BYPASS
  18. METOPROLOL [Concomitant]

REACTIONS (2)
  - Infarction [Recovered/Resolved]
  - Drug ineffective [Recovered/Resolved]
